FAERS Safety Report 15291636 (Version 1)
Quarter: 2018Q3

REPORT INFORMATION
  Report Type: Spontaneous
  Country: IN (occurrence: IN)
  Receive Date: 20180817
  Receipt Date: 20180817
  Transmission Date: 20181010
  Serious: Yes (Life-Threatening, Other)
  Sender: FDA-Public Use
  Company Number: PHHY2018IN075444

PATIENT
  Age: 21 Year
  Sex: Male

DRUGS (5)
  1. VALPROIC ACID. [Concomitant]
     Active Substance: VALPROIC ACID
     Indication: SCHIZOPHRENIA
     Route: 048
  2. FLUOXETINE [Concomitant]
     Active Substance: FLUOXETINE HYDROCHLORIDE
     Indication: SCHIZOPHRENIA
     Route: 048
  3. HALOPERIDOL. [Interacting]
     Active Substance: HALOPERIDOL
     Indication: SCHIZOPHRENIA
     Dosage: 2.5 MG, BID
     Route: 048
  4. PHENERGAN [Concomitant]
     Active Substance: PROMETHAZINE HYDROCHLORIDE
     Indication: SCHIZOPHRENIA
     Dosage: 50 MG, BID
     Route: 030
  5. IMIPRAMINE [Suspect]
     Active Substance: IMIPRAMINE
     Indication: SCHIZOPHRENIA
     Dosage: UNK
     Route: 048

REACTIONS (5)
  - Mydriasis [Unknown]
  - Unresponsive to stimuli [Unknown]
  - Drug interaction [Unknown]
  - Electrocardiogram QT prolonged [Unknown]
  - Depressed level of consciousness [Unknown]
